FAERS Safety Report 20913973 (Version 2)
Quarter: 2022Q2

REPORT INFORMATION
  Report Type: Report from Study
  Country: ES (occurrence: None)
  Receive Date: 20220604
  Receipt Date: 20220608
  Transmission Date: 20220721
  Serious: Yes (Death, Hospitalization)
  Sender: FDA-Public Use
  Company Number: ES-ROCHE-3050195

PATIENT
  Age: 82 Year
  Sex: Male
  Weight: 70 kg

DRUGS (35)
  1. MOSUNETUZUMAB [Suspect]
     Active Substance: MOSUNETUZUMAB
     Indication: Diffuse large B-cell lymphoma
     Dosage: ON 28/DEC/2021 AT 3:00 PM, HE RECEIVED THE MOST RECENT DOSE OF MOSUNETUZUMAB (45 MG) PRIOR TO AE AND
     Route: 058
     Dates: start: 20211005
  2. POLATUZUMAB VEDOTIN [Suspect]
     Active Substance: POLATUZUMAB VEDOTIN
     Indication: Diffuse large B-cell lymphoma
     Dosage: ON 28/DEC/2021, HE RECEIVED THE MOST RECENT DOSE OF POLATUZUMAB VEDOTIN (134 MG) PRIOR TO AE AND SAE
     Route: 042
     Dates: start: 20211005
  3. OMEPRAZOLE [Concomitant]
     Active Substance: OMEPRAZOLE
     Route: 048
     Dates: start: 20211007
  4. OMEPRAZOLE [Concomitant]
     Active Substance: OMEPRAZOLE
     Route: 042
     Dates: start: 20220309
  5. AMLODIPINE BESYLATE [Concomitant]
     Active Substance: AMLODIPINE BESYLATE
     Route: 048
     Dates: start: 20210927
  6. ENOXAPARIN SODIUM [Concomitant]
     Active Substance: ENOXAPARIN SODIUM
     Route: 058
     Dates: start: 20211004
  7. ACYCLOVIR [Concomitant]
     Active Substance: ACYCLOVIR
     Route: 048
     Dates: start: 20211006, end: 20220210
  8. ACYCLOVIR [Concomitant]
     Active Substance: ACYCLOVIR
     Route: 048
     Dates: start: 20220309
  9. ASCORBIC ACID\POTASSIUM BICARBONATE [Concomitant]
     Active Substance: ASCORBIC ACID\POTASSIUM BICARBONATE
     Route: 048
     Dates: start: 20211122, end: 20220210
  10. ORALDINE [Concomitant]
     Dosage: 1 OTHER
     Route: 061
     Dates: start: 20220210
  11. NYSTATIN [Concomitant]
     Active Substance: NYSTATIN
     Dosage: 1 OTHER
     Route: 061
     Dates: start: 20220210
  12. SODIUM CHLORIDE;WATER [Concomitant]
     Route: 042
     Dates: start: 20220210, end: 20220215
  13. FENTANYL [Concomitant]
     Active Substance: FENTANYL
     Dosage: 1 OTHER
     Route: 061
     Dates: start: 20220210, end: 20220215
  14. LORAZEPAM [Concomitant]
     Active Substance: LORAZEPAM
     Dosage: 1 TBSP
     Route: 048
     Dates: start: 20220210, end: 20220215
  15. FUROSEMIDE [Concomitant]
     Active Substance: FUROSEMIDE
     Dosage: 1 AMPULE
     Route: 042
     Dates: start: 20220210
  16. FUROSEMIDE [Concomitant]
     Active Substance: FUROSEMIDE
     Dosage: 2 AMPULE
     Route: 042
     Dates: start: 20220309, end: 20220309
  17. NOLOTIL [Concomitant]
     Dosage: 1 AMPULE
     Route: 042
     Dates: start: 20220210, end: 20220215
  18. DUPHALAC [Concomitant]
     Active Substance: LACTULOSE
     Dosage: 1 OTHER
     Route: 048
     Dates: start: 20220210
  19. DUPHALAC [Concomitant]
     Active Substance: LACTULOSE
     Dosage: 1 U
     Route: 048
     Dates: start: 20220309
  20. PIPERACILLIN SODIUM\TAZOBACTAM SODIUM [Concomitant]
     Active Substance: PIPERACILLIN SODIUM\TAZOBACTAM SODIUM
     Route: 042
     Dates: start: 20220210, end: 20220215
  21. SOTROVIMAB [Concomitant]
     Active Substance: SOTROVIMAB
     Route: 042
     Dates: start: 20210211, end: 20220215
  22. AMOXICILLIN\CLAVULANATE POTASSIUM [Concomitant]
     Active Substance: AMOXICILLIN\CLAVULANATE POTASSIUM
     Route: 048
     Dates: start: 20220210, end: 20220212
  23. DEXTROSE AND SODIUM CHLORIDE [Concomitant]
     Active Substance: DEXTROSE MONOHYDRATE\SODIUM CHLORIDE
     Route: 042
     Dates: start: 20220309, end: 20220312
  24. MORPHINE [Concomitant]
     Active Substance: MORPHINE
     Route: 042
     Dates: start: 20220317, end: 20220321
  25. LEVOFLOXACIN [Concomitant]
     Active Substance: LEVOFLOXACIN
     Route: 042
     Dates: start: 20220309
  26. ACETAMINOPHEN [Concomitant]
     Active Substance: ACETAMINOPHEN
     Route: 042
     Dates: start: 20220309
  27. CEFTAZIDIME [Concomitant]
     Active Substance: CEFTAZIDIME
     Route: 042
     Dates: start: 20220310
  28. DEXAMETHASONE [Concomitant]
     Active Substance: DEXAMETHASONE
     Route: 042
     Dates: start: 20220310, end: 20220313
  29. INSULIN NOS [Concomitant]
     Active Substance: INSULIN NOS
     Dosage: 1 U
     Route: 058
     Dates: start: 20220313
  30. SULFAMETHOXAZOLE\TRIMETHOPRIM [Concomitant]
     Active Substance: SULFAMETHOXAZOLE\TRIMETHOPRIM
     Route: 048
     Dates: start: 20220314, end: 20220317
  31. POSACONAZOLE [Concomitant]
     Active Substance: POSACONAZOLE
     Route: 048
     Dates: start: 20220314, end: 20220319
  32. MIDAZOLAM [Concomitant]
     Active Substance: MIDAZOLAM
     Route: 042
     Dates: start: 20220317, end: 20220321
  33. CEFTAZIDIME [Concomitant]
     Active Substance: CEFTAZIDIME
     Route: 042
     Dates: start: 20220309, end: 20220319
  34. OXYGEN [Concomitant]
     Active Substance: OXYGEN
     Dosage: 10 OTHER
     Route: 045
     Dates: start: 20220310, end: 20220321
  35. KABIVEN [Concomitant]
     Active Substance: AMINO ACIDS\ANHYDROUS DEXTROSE\CALCIUM CHLORIDE\MAGNESIUM SULFATE HEPTAHYDRATE\POTASSIUM CHLORIDE\SO
     Route: 042
     Dates: start: 20220313, end: 20220318

REACTIONS (1)
  - COVID-19 pneumonia [Fatal]

NARRATIVE: CASE EVENT DATE: 20220309
